FAERS Safety Report 9915658 (Version 4)
Quarter: 2015Q1

REPORT INFORMATION
  Report Type: Report from Study
  Country: CA (occurrence: CA)
  Receive Date: 20140221
  Receipt Date: 20150108
  Transmission Date: 20150721
  Serious: Yes (Other)
  Sender: FDA-Public Use
  Company Number: CA-ROCHE-1226056

PATIENT
  Age: 45 Year
  Sex: Female
  Weight: 75 kg

DRUGS (11)
  1. BENADRYL [Concomitant]
     Active Substance: DIPHENHYDRAMINE HYDROCHLORIDE
     Route: 048
     Dates: start: 20121025
  2. SYNTHROID [Concomitant]
     Active Substance: LEVOTHYROXINE SODIUM
  3. CETIRIZINE [Concomitant]
     Active Substance: CETIRIZINE HYDROCHLORIDE
  4. TYLENOL [Concomitant]
     Active Substance: ACETAMINOPHEN
     Route: 048
     Dates: start: 20121025
  5. RITUXAN [Suspect]
     Active Substance: RITUXIMAB
     Route: 042
     Dates: start: 20150106
  6. METHYLPREDNISOLONE. [Suspect]
     Active Substance: METHYLPREDNISOLONE
     Indication: PREMEDICATION
     Route: 042
     Dates: start: 20121025, end: 20121108
  7. METHYLPREDNISOLONE. [Suspect]
     Active Substance: METHYLPREDNISOLONE
     Route: 042
     Dates: start: 20130515
  8. FOLIC ACID. [Concomitant]
     Active Substance: FOLIC ACID
  9. RITUXAN [Suspect]
     Active Substance: RITUXIMAB
     Indication: RHEUMATOID ARTHRITIS
     Dosage: LAST DOSE PRIOR TO SENSITIVITY OF MEDICATION ON 08/NOV/2012?LAST DOSE PRIOR TO NEUROPATHY IN HANDS:
     Route: 042
     Dates: start: 20121025
  10. METHOTREXATE [Concomitant]
     Active Substance: METHOTREXATE
     Route: 065
  11. REMICADE [Concomitant]
     Active Substance: INFLIXIMAB
     Route: 065
     Dates: end: 2012

REACTIONS (4)
  - Weight increased [Unknown]
  - Neuropathy peripheral [Recovering/Resolving]
  - Psychomotor hyperactivity [Unknown]
  - Drug hypersensitivity [Unknown]

NARRATIVE: CASE EVENT DATE: 20140207
